FAERS Safety Report 13040976 (Version 3)
Quarter: 2017Q1

REPORT INFORMATION
  Report Type: Report from Study
  Country: DE (occurrence: DE)
  Receive Date: 20161219
  Receipt Date: 20170109
  Transmission Date: 20170428
  Serious: Yes (Life-Threatening, Hospitalization, Other)
  Sender: FDA-Public Use
  Company Number: DE-BRISTOL-MYERS SQUIBB COMPANY-BMS-2016-106829

PATIENT
  Age: 80 Year
  Sex: Male

DRUGS (1)
  1. APIXABAN [Suspect]
     Active Substance: APIXABAN
     Indication: CEREBROVASCULAR ACCIDENT PROPHYLAXIS
     Dosage: UNK
     Route: 065

REACTIONS (5)
  - Road traffic accident [Recovered/Resolved]
  - Immune thrombocytopenic purpura [Unknown]
  - Cerebral haemorrhage [Recovered/Resolved]
  - Spinal cord haemorrhage [Recovered/Resolved]
  - Hemianopia [Unknown]

NARRATIVE: CASE EVENT DATE: 20161209
